FAERS Safety Report 6895648-9 (Version None)
Quarter: 2010Q3

REPORT INFORMATION
  Report Type: 
  Country: None (occurrence: None)
  Receive Date: 20100728
  Receipt Date: 20100721
  Transmission Date: 20110219
  Serious: Yes (Hospitalization, Other)
  Sender: FDA-Public Use
  Company Number: RB-12596-2010

PATIENT
  Age: 54 Year
  Sex: Female

DRUGS (2)
  1. SUBOXONE [Suspect]
     Indication: DRUG DEPENDENCE
     Dosage: 8 MG SUBLINGUAL
     Route: 060
     Dates: start: 20080101
  2. LORAZEPAM [Concomitant]

REACTIONS (1)
  - BREAST CANCER RECURRENT [None]
